FAERS Safety Report 22080904 (Version 2)
Quarter: 2023Q2

REPORT INFORMATION
  Report Type: Spontaneous
  Country: US (occurrence: US)
  Receive Date: 20230309
  Receipt Date: 20230404
  Transmission Date: 20230722
  Serious: Yes (Other)
  Sender: FDA-Public Use
  Company Number: US-PFIZER INC-PV202300043425

PATIENT
  Age: 63 Year
  Sex: Male
  Weight: 117.91 kg

DRUGS (11)
  1. PAXLOVID [Suspect]
     Active Substance: NIRMATRELVIR\RITONAVIR
     Indication: COVID-19 treatment
     Dosage: [PF-07321332 150 MG]/[RITONAVIR 100 MG]; 2X/DAY
     Route: 048
     Dates: start: 20220608, end: 20220612
  2. ATORVASTATIN [Concomitant]
     Active Substance: ATORVASTATIN
     Dosage: UNK
     Route: 048
     Dates: end: 20220607
  3. ATORVASTATIN [Concomitant]
     Active Substance: ATORVASTATIN
     Dosage: UNK
     Route: 048
  4. MODAFINIL [Concomitant]
     Active Substance: MODAFINIL
     Indication: Somnolence
     Dosage: UNK
     Route: 048
     Dates: end: 20220607
  5. MODAFINIL [Concomitant]
     Active Substance: MODAFINIL
     Dosage: UNK
     Route: 048
  6. FLUTICASONE [Concomitant]
     Active Substance: FLUTICASONE
     Indication: Eustachian tube dysfunction
     Dosage: UNK
     Route: 048
     Dates: end: 20220607
  7. FLUTICASONE [Concomitant]
     Active Substance: FLUTICASONE
     Dosage: UNK
     Route: 048
  8. PROBIOTIC [BIFIDOBACTERIUM BIFIDUM;BIFIDOBACTERIUM LACTIS;BIFIDOBACTER [Concomitant]
     Indication: Supplementation therapy
     Dosage: UNK
     Route: 048
     Dates: end: 20220607
  9. PROBIOTIC [BIFIDOBACTERIUM BIFIDUM;BIFIDOBACTERIUM LACTIS;BIFIDOBACTER [Concomitant]
     Dosage: UNK
     Route: 048
  10. CHOLECALCIFEROL [Concomitant]
     Active Substance: CHOLECALCIFEROL
     Indication: Supplementation therapy
     Dosage: UNK
     Route: 048
     Dates: end: 20220607
  11. CHOLECALCIFEROL [Concomitant]
     Active Substance: CHOLECALCIFEROL
     Dosage: UNK
     Route: 048

REACTIONS (2)
  - COVID-19 pneumonia [Unknown]
  - Disease recurrence [Unknown]

NARRATIVE: CASE EVENT DATE: 20220621
